FAERS Safety Report 8990754 (Version 1)
Quarter: 2012Q4

REPORT INFORMATION
  Report Type: 
  Country: US (occurrence: US)
  Receive Date: 20121228
  Receipt Date: 20121228
  Transmission Date: 20130627
  Serious: No
  Sender: FDA-Public Use
  Company Number: US-PFIZER INC-2012328318

PATIENT
  Age: 52 Year
  Sex: Female

DRUGS (6)
  1. DOXYCYCLINE HYCLATE [Suspect]
     Dosage: UNK
  2. CODEINE [Suspect]
     Dosage: UNK
  3. DEMEROL [Suspect]
     Dosage: UNK
  4. TYLOX [Suspect]
     Dosage: UNK
  5. MEPERGAN [Suspect]
     Dosage: UNK
  6. BACTRIM [Suspect]
     Dosage: UNK

REACTIONS (1)
  - Drug hypersensitivity [Unknown]
